FAERS Safety Report 13375444 (Version 3)
Quarter: 2017Q2

REPORT INFORMATION
  Report Type: Spontaneous
  Country: US (occurrence: US)
  Receive Date: 20170327
  Receipt Date: 20170626
  Transmission Date: 20170830
  Serious: Yes (Other)
  Sender: FDA-Public Use
  Company Number: US-BEH-2017079121

PATIENT
  Age: 9 Year
  Sex: Male
  Weight: 23.58 kg

DRUGS (12)
  1. BUDESONIDE. [Concomitant]
     Active Substance: BUDESONIDE
  2. ALBUTEROL SULFATE. [Concomitant]
     Active Substance: ALBUTEROL SULFATE
  3. CETIRIZINE HCL [Concomitant]
     Active Substance: CETIRIZINE HYDROCHLORIDE
     Dosage: 10 ML, UNK
     Route: 048
     Dates: start: 20170217
  4. HUMAN IMMUNOGLOBULIN IV (INN) [Suspect]
     Active Substance: HUMAN IMMUNOGLOBULIN G
     Indication: PRIMARY IMMUNODEFICIENCY SYNDROME
     Route: 042
  5. RANITIDINE HCL [Concomitant]
     Active Substance: RANITIDINE HYDROCHLORIDE
  6. HIZENTRA [Suspect]
     Active Substance: HUMAN IMMUNOGLOBULIN G
     Indication: PRIMARY IMMUNODEFICIENCY SYNDROME
     Dosage: 2 G, QW
     Route: 058
     Dates: start: 20170419
  7. VENTOLIN [Concomitant]
     Active Substance: ALBUTEROL SULFATE
  8. AZELASTINE HCL [Concomitant]
     Active Substance: AZELASTINE HYDROCHLORIDE
     Dosage: 1 SPRAY EACH NOSTRIL, BID
     Route: 045
     Dates: start: 20170217
  9. ADVAIR HFA [Concomitant]
     Active Substance: FLUTICASONE PROPIONATE\SALMETEROL XINAFOATE
     Route: 055
  10. PREVACID [Concomitant]
     Active Substance: LANSOPRAZOLE
     Route: 048
  11. VITAMIN D                          /00107901/ [Concomitant]
     Active Substance: ERGOCALCIFEROL
  12. MONTELUKAST SODIUM. [Concomitant]
     Active Substance: MONTELUKAST SODIUM
     Dosage: 5 MG, UNK
     Route: 048
     Dates: start: 20170217

REACTIONS (7)
  - Pyrexia [Unknown]
  - Cerebrovascular accident [Unknown]
  - Infusion site mass [Unknown]
  - Vomiting [Unknown]
  - Peripheral coldness [Unknown]
  - Oxygen saturation decreased [Unknown]
  - Tremor [Unknown]

NARRATIVE: CASE EVENT DATE: 20170419
